FAERS Safety Report 9900075 (Version 1)
Quarter: 2014Q1

REPORT INFORMATION
  Report Type: Spontaneous
  Country: US (occurrence: US)
  Receive Date: 20140214
  Receipt Date: 20140214
  Transmission Date: 20141002
  Serious: Yes (Congenital Anomaly)
  Sender: FDA-Public Use
  Company Number: US-FRI-1000054151

PATIENT
  Age: 0 Day
  Sex: Female

DRUGS (2)
  1. LEXAPRO [Suspect]
  2. ZOLOFT [Suspect]

REACTIONS (3)
  - Congenital anomaly [Unknown]
  - Bicuspid aortic valve [Unknown]
  - Aortic stenosis [Unknown]
